FAERS Safety Report 9471521 (Version 1)
Quarter: 2013Q3

REPORT INFORMATION
  Report Type: Spontaneous
  Country: DK (occurrence: None)
  Receive Date: 20130819
  Receipt Date: 20130819
  Transmission Date: 20140515
  Serious: Yes (Other)
  Sender: FDA-Public Use
  Company Number: ENT 2013-0140

PATIENT
  Age: 56 Year
  Sex: Male

DRUGS (3)
  1. ENTACAPONE [Suspect]
  2. CABERGOLINE [Suspect]
  3. LEVODOPA [Suspect]

REACTIONS (3)
  - Pathological gambling [None]
  - Parkinson^s disease [None]
  - Disease progression [None]
